FAERS Safety Report 18184453 (Version 3)
Quarter: 2020Q4

REPORT INFORMATION
  Report Type: Spontaneous
  Country: US (occurrence: US)
  Receive Date: 20200824
  Receipt Date: 20201110
  Transmission Date: 20210113
  Serious: Yes (Hospitalization, Other)
  Sender: FDA-Public Use
  Company Number: US-AUROBINDO-AUR-APL-2020-040563

PATIENT
  Age: 73 Year
  Sex: Female

DRUGS (2)
  1. CLOZAPINE TABLET USP 25 MG [Suspect]
     Active Substance: CLOZAPINE
     Indication: SCHIZOPHRENIA
     Dosage: 3 DOSAGE FORM, ONCE A DAY (AT MORNING)
     Route: 065
  2. CLOZAPINE 100 MG TABLET USP [Suspect]
     Active Substance: CLOZAPINE
     Indication: SCHIZOPHRENIA
     Dosage: 2 DOSAGE FORM, ONCE A DAY (AT BED TIME)
     Route: 065

REACTIONS (1)
  - Hip fracture [Unknown]
